FAERS Safety Report 25307524 (Version 2)
Quarter: 2025Q2

REPORT INFORMATION
  Report Type: Report from Study
  Country: US (occurrence: US)
  Receive Date: 20250513
  Receipt Date: 20250611
  Transmission Date: 20250716
  Serious: Yes (Death, Other)
  Sender: BAYER HEALTHCARE PHARMACEUTICALS INC.
  Company Number: US-BAYER-2025A054482

PATIENT
  Age: 64 Year
  Sex: Male

DRUGS (2)
  1. STIVARGA [Suspect]
     Active Substance: REGORAFENIB MONOHYDRATE
     Indication: Gastrointestinal stromal tumour
     Dates: start: 20250205, end: 20250408
  2. STIVARGA [Suspect]
     Active Substance: REGORAFENIB MONOHYDRATE
     Indication: Metastases to liver

REACTIONS (7)
  - Death [Fatal]
  - General physical health deterioration [None]
  - Asthenia [None]
  - Decreased appetite [None]
  - Weight decreased [None]
  - Gait disturbance [None]
  - Hepatic function abnormal [None]

NARRATIVE: CASE EVENT DATE: 20250101
